FAERS Safety Report 17588299 (Version 1)
Quarter: 2020Q1

REPORT INFORMATION
  Report Type: Spontaneous
  Country: DE (occurrence: DE)
  Receive Date: 20200327
  Receipt Date: 20200327
  Transmission Date: 20200409
  Serious: Yes (Other)
  Sender: FDA-Public Use
  Company Number: DE-TEVA-2020-DE-1210238

PATIENT
  Age: 37 Year
  Sex: Female
  Weight: 78 kg

DRUGS (1)
  1. METOPROLOLSUCCINAT 47.5 MG [Suspect]
     Active Substance: METOPROLOL SUCCINATE
     Indication: HYPERTENSION
     Dosage: 1-0-1 :47.5 MILLIGRAM
     Route: 048
     Dates: start: 2015

REACTIONS (2)
  - Abortion spontaneous [Recovered/Resolved]
  - Infertility [Unknown]

NARRATIVE: CASE EVENT DATE: 20190916
